FAERS Safety Report 21801803 (Version 2)
Quarter: 2023Q1

REPORT INFORMATION
  Report Type: Spontaneous
  Country: FR (occurrence: FR)
  Receive Date: 20221230
  Receipt Date: 20230125
  Transmission Date: 20230417
  Serious: Yes (Other)
  Sender: FDA-Public Use
  Company Number: None

PATIENT
  Sex: Female
  Weight: 45 kg

DRUGS (2)
  1. BIMATOPROST\TIMOLOL [Suspect]
     Active Substance: BIMATOPROST\TIMOLOL
     Indication: Product used for unknown indication
     Dosage: 1 DF, QD
     Route: 055
     Dates: start: 20221208, end: 20221208
  2. BUDESONIDE [Concomitant]
     Active Substance: BUDESONIDE

REACTIONS (3)
  - Oxygen saturation decreased [Recovered/Resolved]
  - Incorrect route of product administration [Unknown]
  - Wrong product administered [Unknown]

NARRATIVE: CASE EVENT DATE: 20221208
